FAERS Safety Report 5082341-0 (Version None)
Quarter: 2006Q3

REPORT INFORMATION
  Report Type: 
  Country: None (occurrence: None)
  Receive Date: 20060817
  Receipt Date: 20060807
  Transmission Date: 20061208
  Serious: Yes (Hospitalization)
  Sender: FDA-Public Use
  Company Number: FR-BRISTOL-MYERS SQUIBB COMPANY-13472964

PATIENT
  Age: 2 Year
  Sex: Male

DRUGS (3)
  1. HOLOXAN [Suspect]
     Indication: BONE SARCOMA
     Route: 042
     Dates: start: 20040802
  2. METHOTREXATE [Suspect]
     Indication: BONE SARCOMA
     Route: 042
     Dates: start: 20041025, end: 20050519
  3. VEPESID [Suspect]
     Indication: BONE SARCOMA
     Route: 042
     Dates: start: 20040802

REACTIONS (1)
  - NEUROPATHY [None]
